FAERS Safety Report 8810057 (Version 1)
Quarter: 2012Q4

REPORT INFORMATION
  Report Type: Report from Study
  Country: US (occurrence: US)
  Receive Date: 20120926
  Receipt Date: 20120926
  Transmission Date: 20130627
  Serious: Yes (Hospitalization)
  Sender: FDA-Public Use
  Company Number: US-GLAXOSMITHKLINE-A0995142A

PATIENT
  Age: 62 Year
  Sex: Female
  Weight: 81.6 kg

DRUGS (14)
  1. MELPHALAN [Suspect]
     Indication: AMYLOIDOSIS
     Dosage: 50MGM2 Per day
     Route: 042
     Dates: start: 20110304, end: 20110305
  2. VELCADE [Suspect]
     Indication: AMYLOIDOSIS
  3. DEXAMETHASONE [Suspect]
     Indication: AMYLOIDOSIS
  4. ATORVASTATIN CALCIUM [Concomitant]
  5. TORASEMIDE [Concomitant]
  6. SPIRONOLACTONE [Concomitant]
  7. VITAMINS [Concomitant]
  8. MAGNESIUM [Concomitant]
  9. CARVEDILOL [Concomitant]
  10. PANTOPRAZOLE [Concomitant]
  11. ACETYLSALICYLIC ACID [Concomitant]
  12. MIRTAZAPINE [Concomitant]
  13. LEVOFLOXACIN [Concomitant]
  14. LORAZEPAM [Concomitant]

REACTIONS (3)
  - Pneumonia [Recovered/Resolved]
  - Dyspnoea [Recovered/Resolved]
  - Cardiac failure [Recovered/Resolved]
